FAERS Safety Report 15860332 (Version 4)
Quarter: 2020Q3

REPORT INFORMATION
  Report Type: Report from Study
  Country: None (occurrence: KR)
  Receive Date: 20190123
  Receipt Date: 20190208
  Transmission Date: 20201105
  Serious: Yes (Hospitalization, Other)
  Sender: FDA-Public Use
  Company Number: KR-ABBVIE-19P-090-2635084-00

PATIENT
  Age: 69 Year
  Sex: Male

DRUGS (75)
  1. PENIRAMIN [Concomitant]
     Route: 042
     Dates: start: 20190122, end: 20190122
  2. SODIUM BICARBONATE. [Concomitant]
     Active Substance: SODIUM BICARBONATE
     Dates: start: 20181019, end: 20181215
  3. MACPERAN [Concomitant]
     Active Substance: METOCLOPRAMIDE HYDROCHLORIDE
     Route: 042
     Dates: start: 20181229, end: 20190102
  4. PERATAM [Concomitant]
     Indication: PYREXIA
     Route: 042
     Dates: start: 20181122, end: 20181217
  5. SOLONDO [Concomitant]
     Active Substance: PREDNISOLONE
     Indication: STOMATITIS
     Dates: start: 20181130, end: 20181220
  6. LEVOTUSS [Concomitant]
     Active Substance: LEVODROPROPIZINE
     Indication: COUGH
     Dates: start: 20181205
  7. TARGIN [Concomitant]
     Active Substance: NALOXONE HYDROCHLORIDE\OXYCODONE HYDROCHLORIDE
     Dosage: TARGIN CR 40/20
     Dates: start: 20181211, end: 20181219
  8. OLIMEL E [Concomitant]
     Active Substance: AMINO ACIDS\DEXTROSE\ELECTROLYTES NOS\SOYBEAN OIL
     Indication: HYPOPHAGIA
     Route: 042
     Dates: start: 20181228, end: 20181229
  9. TYLENOL [Concomitant]
     Active Substance: ACETAMINOPHEN
     Route: 048
     Dates: start: 20190104, end: 20190104
  10. TYLENOL [Concomitant]
     Active Substance: ACETAMINOPHEN
     Route: 048
     Dates: start: 20181224, end: 20181224
  11. TANTUM [Concomitant]
     Active Substance: BENZYDAMINE HYDROCHLORIDE
     Indication: STOMATITIS
     Dates: start: 20181121
  12. CYMBALTA [Concomitant]
     Active Substance: DULOXETINE HYDROCHLORIDE
     Indication: PAIN IN EXTREMITY
     Dates: start: 20181121
  13. MACPERAN [Concomitant]
     Active Substance: METOCLOPRAMIDE HYDROCHLORIDE
     Indication: NAUSEA
     Route: 042
     Dates: start: 20181221, end: 20181221
  14. DIGOXIN. [Concomitant]
     Active Substance: DIGOXIN
     Dates: start: 20190115, end: 20190116
  15. MORPHINE SULFATE. [Concomitant]
     Active Substance: MORPHINE SULFATE
     Indication: MUSCULOSKELETAL CHEST PAIN
     Dates: start: 20190119, end: 20190119
  16. DICAMAX [Concomitant]
     Indication: PROPHYLAXIS
     Dates: start: 20181121, end: 20190114
  17. DEXAMETHASONE. [Concomitant]
     Active Substance: DEXAMETHASONE
     Indication: PRODUCT USED FOR UNKNOWN INDICATION
     Route: 042
     Dates: start: 20181221, end: 20181221
  18. PENIRAMIN [Concomitant]
     Route: 042
     Dates: start: 20190115, end: 20190117
  19. PENIRAMIN [Concomitant]
     Route: 042
     Dates: start: 20190120, end: 20190120
  20. MACPERAN [Concomitant]
     Active Substance: METOCLOPRAMIDE HYDROCHLORIDE
     Route: 042
     Dates: start: 20181226, end: 20181226
  21. CONCOR [Concomitant]
     Active Substance: BISOPROLOL FUMARATE
     Indication: ATRIAL FIBRILLATION
     Dates: start: 20181121
  22. TARGIN [Concomitant]
     Active Substance: NALOXONE HYDROCHLORIDE\OXYCODONE HYDROCHLORIDE
     Indication: MUSCULOSKELETAL CHEST PAIN
     Dosage: TARGIN CR 40/20
     Dates: start: 20181208
  23. OLIMEL E [Concomitant]
     Active Substance: AMINO ACIDS\DEXTROSE\ELECTROLYTES NOS\SOYBEAN OIL
     Route: 042
     Dates: start: 20190122
  24. FURTMAN [Concomitant]
     Indication: PRODUCT USED FOR UNKNOWN INDICATION
     Dates: start: 20190113, end: 20190115
  25. ALBUMIN [Concomitant]
     Active Substance: ALBUMIN HUMAN
     Indication: HYPOALBUMINAEMIA
     Dates: start: 20190116, end: 20190117
  26. VENETOCLAX. [Suspect]
     Active Substance: VENETOCLAX
     Indication: DIFFUSE LARGE B-CELL LYMPHOMA
     Dosage: MOST RECENT DOSE PRIOR TO AE ONSET: 30/DEC/2018: 400 MG. DAILY DAYS 1?10 OF EACH CYCLE
     Route: 048
     Dates: start: 20181221
  27. ZYLORIC [Concomitant]
     Active Substance: ALLOPURINOL
     Indication: PRODUCT USED FOR UNKNOWN INDICATION
     Route: 048
     Dates: start: 20181221, end: 20181221
  28. MACPERAN [Concomitant]
     Active Substance: METOCLOPRAMIDE HYDROCHLORIDE
     Route: 042
     Dates: start: 20181228, end: 20181229
  29. ASPIRIN. [Concomitant]
     Active Substance: ASPIRIN
     Indication: ATRIAL FIBRILLATION
     Dates: start: 20181215
  30. IRCODON [Concomitant]
     Active Substance: OXYCODONE HYDROCHLORIDE
     Route: 048
     Dates: start: 20181228
  31. PANTOLOC [Concomitant]
     Active Substance: PANTOPRAZOLE SODIUM
     Indication: PRODUCT USED FOR UNKNOWN INDICATION
     Dates: start: 20190114
  32. TYLENOL [Concomitant]
     Active Substance: ACETAMINOPHEN
     Indication: PRODUCT USED FOR UNKNOWN INDICATION
     Route: 048
     Dates: start: 20181221, end: 20181221
  33. ALOXI [Concomitant]
     Active Substance: PALONOSETRON HYDROCHLORIDE
     Route: 042
     Dates: start: 20181228, end: 20181228
  34. ESOMEZOL [Concomitant]
     Indication: PROPHYLAXIS
     Dates: start: 20181121
  35. MACPERAN [Concomitant]
     Active Substance: METOCLOPRAMIDE HYDROCHLORIDE
     Route: 042
     Dates: start: 20181225, end: 20181225
  36. ERDOS [Concomitant]
     Active Substance: ERDOSTEINE
     Indication: PRODUCTIVE COUGH
     Dates: start: 20181205
  37. IRCODON [Concomitant]
     Active Substance: OXYCODONE HYDROCHLORIDE
     Route: 048
     Dates: start: 20181225, end: 20181226
  38. NAXEN?F [Concomitant]
     Indication: PYREXIA
     Route: 048
     Dates: start: 20181224, end: 20181224
  39. BEAROBAN [Concomitant]
     Indication: HERPES ZOSTER
     Dates: start: 20181226, end: 20181226
  40. DIGOXIN. [Concomitant]
     Active Substance: DIGOXIN
     Indication: PRODUCT USED FOR UNKNOWN INDICATION
     Dates: start: 20190115, end: 20190115
  41. IDASANUTLIN. [Suspect]
     Active Substance: IDASANUTLIN
     Indication: DIFFUSE LARGE B-CELL LYMPHOMA
     Dosage: STARTING DOSE 100 MG, MAX 600 MG: MOST RECENT DOSE PRIOR TO AE ONSET 25 DEC 2018: 100MG
     Route: 048
     Dates: start: 20181221
  42. DEXAMETHASONE. [Concomitant]
     Active Substance: DEXAMETHASONE
     Route: 042
     Dates: start: 20190117, end: 20190122
  43. PENIRAMIN [Concomitant]
     Indication: PRODUCT USED FOR UNKNOWN INDICATION
     Route: 042
     Dates: start: 20181221, end: 20181221
  44. DUPHALAC EASY [Concomitant]
     Indication: CONSTIPATION
     Dates: start: 20181214, end: 20181222
  45. PERATAM [Concomitant]
     Route: 042
     Dates: start: 20181223, end: 20181229
  46. IRCODON [Concomitant]
     Active Substance: OXYCODONE HYDROCHLORIDE
     Indication: MUSCULOSKELETAL CHEST PAIN
     Route: 048
     Dates: start: 20181210, end: 20181222
  47. IRCODON [Concomitant]
     Active Substance: OXYCODONE HYDROCHLORIDE
     Route: 048
     Dates: start: 20181228
  48. PETHIDINE [Concomitant]
     Active Substance: MEPERIDINE
     Indication: PRODUCT USED FOR UNKNOWN INDICATION
     Dates: start: 20181214, end: 20181214
  49. SEPTRIN [Concomitant]
     Active Substance: SULFAMETHOXAZOLE\TRIMETHOPRIM
     Indication: PYREXIA
     Dates: start: 20181217, end: 20181229
  50. ADELAVIN [Concomitant]
     Active Substance: FLAVIN ADENINE DINUCLEOTIDE
     Indication: PRODUCT USED FOR UNKNOWN INDICATION
     Dates: start: 20190113, end: 20190115
  51. MORPHINE SULFATE. [Concomitant]
     Active Substance: MORPHINE SULFATE
     Dates: start: 20190121, end: 20190122
  52. HUMULIN R [Concomitant]
     Active Substance: INSULIN HUMAN
     Indication: HYPERGLYCAEMIA
     Dates: start: 20190122
  53. TYLENOL [Concomitant]
     Active Substance: ACETAMINOPHEN
     Route: 048
     Dates: start: 20181228, end: 20181228
  54. ALOXI [Concomitant]
     Active Substance: PALONOSETRON HYDROCHLORIDE
     Indication: PRODUCT USED FOR UNKNOWN INDICATION
     Route: 042
     Dates: start: 20181221, end: 20181221
  55. SODIUM BICARBONATE. [Concomitant]
     Active Substance: SODIUM BICARBONATE
     Indication: PROPHYLAXIS
     Dates: start: 20181124
  56. SODIUM BICARBONATE. [Concomitant]
     Active Substance: SODIUM BICARBONATE
     Dates: start: 20181220, end: 20181228
  57. AMPICILLIN [Concomitant]
     Active Substance: AMPICILLIN
     Indication: STOMATITIS
     Dates: start: 20181130, end: 20181220
  58. MUCOSTEN [Concomitant]
     Indication: PRODUCT USED FOR UNKNOWN INDICATION
     Dates: start: 20190114, end: 20190122
  59. FILTERED PACKED RBC [Concomitant]
     Indication: ANAEMIA
     Dates: start: 20190114, end: 20190114
  60. GANCICLOVIR SODIUM. [Concomitant]
     Active Substance: GANCICLOVIR SODIUM
     Indication: PRODUCT USED FOR UNKNOWN INDICATION
     Route: 042
     Dates: start: 20190116
  61. LASIX [Concomitant]
     Active Substance: FUROSEMIDE
     Indication: PRODUCT USED FOR UNKNOWN INDICATION
     Route: 042
     Dates: start: 20190114, end: 20190122
  62. ALBUMIN [Concomitant]
     Active Substance: ALBUMIN HUMAN
     Dates: start: 20190119, end: 20190120
  63. TRIDOL [Concomitant]
     Active Substance: TRAMADOL HYDROCHLORIDE
     Indication: MUSCULOSKELETAL CHEST PAIN
     Dates: start: 20190116, end: 20190122
  64. NORMAL SALINE [Concomitant]
     Active Substance: SODIUM CHLORIDE
     Indication: PRODUCT USED FOR UNKNOWN INDICATION
     Route: 042
     Dates: start: 20190113, end: 20190113
  65. GA101 [Suspect]
     Active Substance: OBINUTUZUMAB
     Indication: DIFFUSE LARGE B-CELL LYMPHOMA
     Dosage: FIXED DOSE: DAYS 1, 8, 15 OF C1: MOST RECENT DOSE PRIOR TO SAE ONSET: 04/JAN/2019, 1000 MG
     Route: 042
     Dates: start: 20181221
  66. TYLENOL [Concomitant]
     Active Substance: ACETAMINOPHEN
     Route: 048
     Dates: start: 20181226, end: 20181226
  67. TYLENOL [Concomitant]
     Active Substance: ACETAMINOPHEN
     Route: 048
     Dates: start: 20181229, end: 20190104
  68. MACPERAN [Concomitant]
     Active Substance: METOCLOPRAMIDE HYDROCHLORIDE
     Route: 042
     Dates: start: 20181223, end: 20181223
  69. LEUKOCYTE REDUCED RED BLOOD CELLS [Concomitant]
     Indication: ANAEMIA
     Dates: start: 20181228, end: 20181228
  70. DENOGAN [Concomitant]
     Active Substance: PROPACETAMOL HYDROCHLORIDE
     Indication: PYREXIA
     Dates: start: 20181222, end: 20181224
  71. FAMVIR [Concomitant]
     Active Substance: FAMCICLOVIR
     Indication: HERPES ZOSTER
     Route: 048
     Dates: start: 20181226, end: 20190101
  72. BANAN [Concomitant]
     Active Substance: CEFPODOXIME PROXETIL
     Indication: PYREXIA
     Route: 048
     Dates: start: 20181229, end: 20190111
  73. VIMOVO [Concomitant]
     Active Substance: ESOMEPRAZOLE MAGNESIUM\NAPROXEN
     Indication: PYREXIA
     Route: 048
     Dates: start: 20190104, end: 20190114
  74. OXYGEN. [Concomitant]
     Active Substance: OXYGEN
     Indication: PRODUCT USED FOR UNKNOWN INDICATION
  75. NITROGLYCERIN. [Concomitant]
     Active Substance: NITROGLYCERIN
     Indication: PRODUCT USED FOR UNKNOWN INDICATION
     Dates: start: 20190121, end: 20190121

REACTIONS (3)
  - Pneumonia [Not Recovered/Not Resolved]
  - Thrombocytopenia [Not Recovered/Not Resolved]
  - Neutropenia [Recovered/Resolved]

NARRATIVE: CASE EVENT DATE: 20190113
